FAERS Safety Report 23672725 (Version 1)
Quarter: 2024Q1

REPORT INFORMATION
  Report Type: Spontaneous
  Country: US (occurrence: US)
  Receive Date: 20240326
  Receipt Date: 20240326
  Transmission Date: 20240410
  Serious: No
  Sender: FDA-Public Use
  Company Number: US-PFIZER INC-202400063211

PATIENT
  Age: 15 Year
  Sex: Female
  Weight: 45.351 kg

DRUGS (3)
  1. GENOTROPIN [Suspect]
     Active Substance: SOMATROPIN
     Indication: Short stature
     Dosage: 1.7 MG
     Dates: start: 202402
  2. GENOTROPIN [Suspect]
     Active Substance: SOMATROPIN
     Dosage: ALTERNATE THE DOSE OF 1.6 AND 1.8 NIGHTLY
     Dates: start: 202402
  3. GENOTROPIN [Suspect]
     Active Substance: SOMATROPIN
     Dosage: ALTERNATE THE DOSE OF 1.6 AND 1.8 NIGHTLY
     Dates: start: 202402

REACTIONS (5)
  - Device use error [Unknown]
  - Device breakage [Unknown]
  - Device issue [Unknown]
  - Drug dose omission by device [Unknown]
  - Product prescribing error [Unknown]

NARRATIVE: CASE EVENT DATE: 20240101
